FAERS Safety Report 8514639-5 (Version None)
Quarter: 2012Q3

REPORT INFORMATION
  Report Type: 
  Country: None (occurrence: None)
  Receive Date: 20120717
  Receipt Date: 20120705
  Transmission Date: 20120928
  Serious: Yes (Hospitalization)
  Sender: FDA-Public Use
  Company Number: GB-CELGENEUS-167-20785-12063174

PATIENT
  Age: 87 Year
  Sex: Male

DRUGS (3)
  1. THALIDOMIDE [Suspect]
     Route: 048
     Dates: start: 20120525
  2. CYCLOPHOSPHAMIDE [Suspect]
     Route: 048
     Dates: start: 20120525
  3. DEXAMETHASONE [Suspect]
     Route: 048
     Dates: start: 20120525

REACTIONS (2)
  - DECREASED APPETITE [None]
  - MOBILITY DECREASED [None]
